FAERS Safety Report 24808135 (Version 1)
Quarter: 2025Q1

REPORT INFORMATION
  Report Type: Spontaneous
  Country: IN (occurrence: IN)
  Receive Date: 20250106
  Receipt Date: 20250106
  Transmission Date: 20250409
  Serious: Yes (Other)
  Sender: STRIDES
  Company Number: IN-STRIDES ARCOLAB LIMITED-2025SP000060

PATIENT
  Age: 3 Decade
  Sex: Female

DRUGS (3)
  1. HALOPERIDOL [Suspect]
     Active Substance: HALOPERIDOL
     Indication: Schizophrenia
     Route: 065
  2. CLONAZEPAM [Suspect]
     Active Substance: CLONAZEPAM
     Indication: Schizophrenia
     Route: 065
  3. CLONAZEPAM [Suspect]
     Active Substance: CLONAZEPAM
     Route: 065

REACTIONS (2)
  - Rebound effect [Recovered/Resolved]
  - Therapy partial responder [Unknown]
